FAERS Safety Report 21147470 (Version 1)
Quarter: 2022Q3

REPORT INFORMATION
  Report Type: Spontaneous
  Country: US (occurrence: None)
  Receive Date: 20220728
  Receipt Date: 20220728
  Transmission Date: 20221026
  Serious: No
  Sender: FDA-Public Use
  Company Number: None

PATIENT
  Sex: Female
  Weight: 59.87 kg

DRUGS (1)
  1. SYNTHROID [Suspect]
     Active Substance: LEVOTHYROXINE SODIUM
     Indication: Hypothyroidism
     Dosage: 50MCG TABLET DAILY ORAL
     Route: 048

REACTIONS (5)
  - Thyroiditis [None]
  - Fatigue [None]
  - Depression [None]
  - Weight increased [None]
  - Product substitution issue [None]
